FAERS Safety Report 21048298 (Version 1)
Quarter: 2022Q3

REPORT INFORMATION
  Report Type: Spontaneous
  Country: BE (occurrence: BE)
  Receive Date: 20220706
  Receipt Date: 20220706
  Transmission Date: 20221027
  Serious: Yes (Life-Threatening, Other)
  Sender: FDA-Public Use
  Company Number: BE-EXELA PHARMA SCIENCES, LLC-2022EXL00018

PATIENT
  Age: 29 Week

DRUGS (1)
  1. ERYTHROMYCIN [Suspect]
     Active Substance: ERYTHROMYCIN
     Indication: Antibiotic prophylaxis
     Route: 065

REACTIONS (4)
  - Ventricular extrasystoles [Recovered/Resolved]
  - Tachyarrhythmia [Recovered/Resolved]
  - Ventricular tachycardia [Recovered/Resolved]
  - Long QT syndrome [Recovered/Resolved]
